FAERS Safety Report 7234903-X (Version None)
Quarter: 2011Q1

REPORT INFORMATION
  Report Type: 
  Country: None (occurrence: None)
  Receive Date: 20110120
  Receipt Date: 20110106
  Transmission Date: 20110831
  Serious: No
  Sender: FDA-Public Use
  Company Number: US-B.I. PHARMACEUTICALS,INC./RIDGEFIELD-2011-BP-00704BP

PATIENT
  Sex: Male

DRUGS (10)
  1. ADVAIR [Concomitant]
     Indication: EMPHYSEMA
  2. VENTOLIN [Concomitant]
     Indication: EMPHYSEMA
  3. ADVAIR [Concomitant]
     Indication: CHRONIC OBSTRUCTIVE PULMONARY DISEASE
     Dosage: IH, 250/50, 500/100
     Route: 055
     Dates: start: 20060101
  4. VENTOLIN [Concomitant]
     Indication: CHRONIC OBSTRUCTIVE PULMONARY DISEASE
     Dosage: IH, PRN
     Route: 055
     Dates: start: 20060101
  5. AZOPT [Concomitant]
     Dosage: EYE DROP; 1 %, 1 DROP BID
     Route: 031
     Dates: start: 20101201
  6. TRAVATAN [Concomitant]
     Dosage: EYE DROP; 4%, 1 DROP BID LEFT EYE ONLY
     Route: 031
     Dates: start: 20101201
  7. LOTEMAX [Concomitant]
     Dosage: EYE DROP; 5%, 1 DROP DAILY
     Route: 031
     Dates: start: 20101201
  8. SPIRIVA [Suspect]
     Indication: CHRONIC OBSTRUCTIVE PULMONARY DISEASE
     Dosage: 18 MCG
     Route: 055
     Dates: start: 20060101
  9. SPIRIVA [Suspect]
     Indication: EMPHYSEMA
  10. DUREZOL [Concomitant]
     Dosage: EYE DROP; 5%, 1 DROP QID LEFT EYE ONLY
     Route: 031
     Dates: start: 20101201

REACTIONS (4)
  - GLAUCOMA [None]
  - CATARACT [None]
  - VISUAL IMPAIRMENT [None]
  - PTERYGIUM [None]
